FAERS Safety Report 9334398 (Version 1)
Quarter: 2013Q2

REPORT INFORMATION
  Report Type: Spontaneous
  Country: ES (occurrence: ES)
  Receive Date: 20130606
  Receipt Date: 20130606
  Transmission Date: 20140414
  Serious: Yes (Death, Hospitalization, Other)
  Sender: FDA-Public Use
  Company Number: ES-EISAI INC-E7389-03634-SPO-ES

PATIENT
  Age: 49 Year
  Sex: Female

DRUGS (6)
  1. HALAVEN [Suspect]
     Indication: BREAST CANCER
     Route: 041
     Dates: start: 20130130, end: 20130227
  2. ELICA [Concomitant]
     Dosage: UNKNOWN
     Route: 003
  3. IBUPROFEN [Concomitant]
     Route: 065
  4. OMEPRAZOL [Concomitant]
     Route: 065
  5. DEXAMETASONE [Concomitant]
     Route: 048
  6. ACETAMINOPHEN [Concomitant]
     Route: 065

REACTIONS (5)
  - Hepatic failure [Fatal]
  - Hepatomegaly [Not Recovered/Not Resolved]
  - Alanine aminotransferase increased [Not Recovered/Not Resolved]
  - Aspartate aminotransferase increased [Not Recovered/Not Resolved]
  - Blood alkaline phosphatase increased [Not Recovered/Not Resolved]
